FAERS Safety Report 4301222-0 (Version None)
Quarter: 2004Q1

REPORT INFORMATION
  Report Type: 
  Country: None (occurrence: None)
  Receive Date: 20040218
  Receipt Date: 20031105
  Transmission Date: 20041129
  Serious: No
  Sender: FDA-Public Use
  Company Number: 2003-11-0409

PATIENT
  Age: 45 Year
  Sex: Female

DRUGS (2)
  1. PEG-INTRON [Suspect]
     Route: 058
  2. REBETOL [Suspect]
     Route: 048

REACTIONS (3)
  - BLOOD BILIRUBIN INCREASED [None]
  - JAUNDICE [None]
  - LIVER FUNCTION TEST ABNORMAL [None]
